FAERS Safety Report 10003450 (Version 1)
Quarter: 2014Q1

REPORT INFORMATION
  Report Type: Report from Study
  Country: BR (occurrence: BR)
  Receive Date: 20140312
  Receipt Date: 20140312
  Transmission Date: 20141002
  Serious: Yes (Other)
  Sender: FDA-Public Use
  Company Number: PHHY2014BR028129

PATIENT
  Age: 68 Year
  Sex: Female
  Weight: 62 kg

DRUGS (2)
  1. CAPTOPRIL SANDOZ [Suspect]
     Indication: BLOOD PRESSURE
     Dosage: 25 MG, BID
     Route: 048
     Dates: start: 20131217
  2. SINVASTACOR [Concomitant]
     Indication: BLOOD CHOLESTEROL
     Route: 048

REACTIONS (5)
  - Blood pressure fluctuation [Unknown]
  - Dyspepsia [Unknown]
  - Allergic cough [Recovered/Resolved]
  - Headache [Recovered/Resolved]
  - Malaise [Unknown]
